FAERS Safety Report 4534176-2 (Version None)
Quarter: 2004Q4

REPORT INFORMATION
  Report Type: 
  Country: None (occurrence: None)
  Receive Date: 20041221
  Receipt Date: 20041221
  Transmission Date: 20050328
  Serious: Yes (Life-Threatening, Hospitalization)
  Sender: FDA-Public Use
  Company Number: None

PATIENT
  Sex: Female
  Weight: 71.6683 kg

DRUGS (5)
  1. VYTORIN [Suspect]
     Indication: BLOOD CHOLESTEROL INCREASED
     Dates: start: 20040917, end: 20041012
  2. LOTREL [Concomitant]
  3. ASPIRIN [Concomitant]
  4. BROMFED [Concomitant]
  5. CALCIUM [Concomitant]

REACTIONS (9)
  - ABASIA [None]
  - ASTHENIA [None]
  - CHOLELITHIASIS [None]
  - HEPATIC ENZYME INCREASED [None]
  - INFLUENZA LIKE ILLNESS [None]
  - MARKEDLY REDUCED DIETARY INTAKE [None]
  - METASTASES TO LIVER [None]
  - MUSCLE CRAMP [None]
  - WHITE BLOOD CELL COUNT INCREASED [None]
